FAERS Safety Report 8300773-1 (Version None)
Quarter: 2012Q2

REPORT INFORMATION
  Report Type: 
  Country: None (occurrence: None)
  Receive Date: 20120420
  Receipt Date: 20120417
  Transmission Date: 20120825
  Serious: Yes (Hospitalization)
  Sender: FDA-Public Use
  Company Number: PHEH2012US008259

PATIENT
  Sex: Female

DRUGS (12)
  1. ZOCOR [Concomitant]
     Dosage: UNK
  2. DIOVAN [Suspect]
     Dosage: 160 MG, BID
  3. NORVASC [Concomitant]
     Dosage: UNK
  4. SINGULAIR [Concomitant]
     Dosage: UNK
  5. ZANTAC [Concomitant]
     Dosage: UNK
  6. DYAZIDE [Suspect]
     Dosage: UNK
  7. FERROUS SULFATE TAB [Suspect]
     Dosage: UNK
  8. CLORINOX [Suspect]
     Dosage: UNK
  9. PROVENTIL [Concomitant]
     Dosage: UNK
  10. SYNTHROID [Concomitant]
     Dosage: UNK
  11. NASONEX [Concomitant]
     Dosage: UNK
  12. WARFARIN SODIUM [Concomitant]
     Dosage: UNK

REACTIONS (1)
  - URINARY TRACT INFECTION [None]
